FAERS Safety Report 7318117-0 (Version None)
Quarter: 2011Q1

REPORT INFORMATION
  Report Type: 
  Country: None (occurrence: None)
  Receive Date: 20110228
  Receipt Date: 20110216
  Transmission Date: 20110831
  Serious: No
  Sender: FDA-Public Use
  Company Number: US-BIOGENIDEC-2010BI013807

PATIENT
  Age: 39 Year
  Sex: Female

DRUGS (3)
  1. TYSABRI [Suspect]
     Indication: MULTIPLE SCLEROSIS
     Route: 042
     Dates: start: 20100212
  2. AVONEX [Concomitant]
     Route: 030
     Dates: start: 20090131
  3. AVONEX [Concomitant]
     Indication: MULTIPLE SCLEROSIS
     Route: 030
     Dates: start: 20041101

REACTIONS (10)
  - PRURITUS [None]
  - ARTHRALGIA [None]
  - FATIGUE [None]
  - NASOPHARYNGITIS [None]
  - MYALGIA [None]
  - FLUSHING [None]
  - URTICARIA [None]
  - NAUSEA [None]
  - FALL [None]
  - BALANCE DISORDER [None]
